FAERS Safety Report 9528010 (Version 1)
Quarter: 2013Q3

REPORT INFORMATION
  Report Type: Spontaneous
  Country: US (occurrence: None)
  Receive Date: 20130913
  Receipt Date: 20130913
  Transmission Date: 20140515
  Serious: Yes (Life-Threatening, Hospitalization, Other)
  Sender: FDA-Public Use
  Company Number: 2013/179

PATIENT
  Age: 71 Year
  Sex: Female

DRUGS (7)
  1. CEPHALEXIN [Suspect]
     Indication: LOWER RESPIRATORY TRACT INFECTION
     Route: 048
     Dates: start: 201302
  2. AMILORIDE HYDROCHLORIDE FRUSEMIDE (CO-AMILOFRUSE) [Concomitant]
  3. CODEINE PHOSPHATE-PARACETAMOL (CO-COMADOL) [Concomitant]
  4. FOLIC ACID (NO PREF. NAME) [Concomitant]
  5. METHOTREXATE (NO PREF NAME) [Concomitant]
  6. FLUTICASONE PROPIONATE-SALMETEROL XINAFOATE (SERTRIDE) [Concomitant]
  7. TIOTROPIUM BROMIDE (NO PREF. NAME) [Concomitant]

REACTIONS (3)
  - Systemic inflammatory response syndrome [None]
  - Pneumonia [None]
  - Drug ineffective [None]
